FAERS Safety Report 18142772 (Version 1)
Quarter: 2020Q3

REPORT INFORMATION
  Report Type: Spontaneous
  Country: CA (occurrence: CA)
  Receive Date: 20200812
  Receipt Date: 20200812
  Transmission Date: 20201103
  Serious: Yes (Other)
  Sender: FDA-Public Use
  Company Number: CA-TEVA-2020-CA-1813278

PATIENT
  Age: 54 Year
  Sex: Female

DRUGS (13)
  1. XELJANZ [Suspect]
     Active Substance: TOFACITINIB CITRATE
     Indication: RHEUMATOID ARTHRITIS
     Route: 048
  2. XELJANZ [Suspect]
     Active Substance: TOFACITINIB CITRATE
     Route: 065
  3. ENBREL [Suspect]
     Active Substance: ETANERCEPT
     Indication: RHEUMATOID ARTHRITIS
     Route: 058
  4. RITUXIMAB. [Suspect]
     Active Substance: RITUXIMAB
     Indication: RHEUMATOID ARTHRITIS
     Route: 042
  5. VIOXX [Suspect]
     Active Substance: ROFECOXIB
     Indication: RHEUMATOID ARTHRITIS
     Route: 048
  6. XELJANZ [Suspect]
     Active Substance: TOFACITINIB CITRATE
     Dosage: 10 MILLIGRAM DAILY;
     Route: 048
  7. CELEBREX [Suspect]
     Active Substance: CELECOXIB
     Indication: RHEUMATOID ARTHRITIS
     Route: 048
  8. SIMPONI [Suspect]
     Active Substance: GOLIMUMAB
     Indication: RHEUMATOID ARTHRITIS
     Route: 058
  9. METHOTREXATE. [Suspect]
     Active Substance: METHOTREXATE
     Indication: RHEUMATOID ARTHRITIS
     Route: 065
  10. CELEBREX [Suspect]
     Active Substance: CELECOXIB
     Route: 065
  11. HUMIRA [Suspect]
     Active Substance: ADALIMUMAB
     Indication: RHEUMATOID ARTHRITIS
     Route: 058
  12. VIOXX [Suspect]
     Active Substance: ROFECOXIB
     Route: 065
  13. XELJANZ [Suspect]
     Active Substance: TOFACITINIB CITRATE
     Dosage: 20 MILLIGRAM DAILY;
     Route: 048

REACTIONS (4)
  - Rheumatoid arthritis [Not Recovered/Not Resolved]
  - Nasopharyngitis [Not Recovered/Not Resolved]
  - Stress [Not Recovered/Not Resolved]
  - Drug ineffective [Not Recovered/Not Resolved]
